FAERS Safety Report 13660136 (Version 2)
Quarter: 2017Q3

REPORT INFORMATION
  Report Type: Spontaneous
  Country: JP (occurrence: JP)
  Receive Date: 20170616
  Receipt Date: 20170907
  Transmission Date: 20171127
  Serious: Yes (Hospitalization, Other)
  Sender: FDA-Public Use
  Company Number: JP-009507513-1706JPN001141J

PATIENT
  Age: 58 Year
  Sex: Male
  Weight: 59 kg

DRUGS (2)
  1. ERELSA TABLETS 50MG [Suspect]
     Active Substance: ELBASVIR
     Indication: HEPATITIS C
     Dosage: 50 MG, QD
     Route: 048
     Dates: start: 20170413
  2. GRAZYNA TABLETS 50MG [Suspect]
     Active Substance: GRAZOPREVIR
     Indication: HEPATITIS C
     Dosage: 100 MG, QD
     Route: 048
     Dates: start: 20170413

REACTIONS (1)
  - Facial paralysis [Not Recovered/Not Resolved]

NARRATIVE: CASE EVENT DATE: 20170606
